FAERS Safety Report 9768449 (Version 1)
Quarter: 2013Q4

REPORT INFORMATION
  Report Type: Spontaneous
  Country: DK (occurrence: DK)
  Receive Date: 20131217
  Receipt Date: 20131217
  Transmission Date: 20140711
  Serious: Yes (Disabling)
  Sender: FDA-Public Use
  Company Number: DK-B.I. PHARMACEUTICALS,INC./RIDGEFIELD-2013-BI-41995DB

PATIENT
  Age: 62 Year
  Sex: Female
  Weight: 65 kg

DRUGS (2)
  1. PRADAXA [Suspect]
     Indication: ATRIAL FIBRILLATION
     Dosage: 300 MG
     Route: 048
     Dates: start: 20131101, end: 20131110
  2. DIGOXIN ^DAK^ / DIGOXIN [Concomitant]
     Indication: ATRIAL FIBRILLATION
     Dates: start: 2007

REACTIONS (5)
  - Haematochezia [Recovered/Resolved]
  - Headache [Recovered/Resolved]
  - Hallucination, visual [Recovered/Resolved]
  - Faeces hard [Recovered/Resolved]
  - Bed rest [Not Recovered/Not Resolved]
